FAERS Safety Report 9081567 (Version 1)
Quarter: 2013Q1

REPORT INFORMATION
  Report Type: Spontaneous
  Country: US (occurrence: US)
  Receive Date: 20130128
  Receipt Date: 20130128
  Transmission Date: 20140127
  Serious: Yes (Hospitalization)
  Sender: FDA-Public Use
  Company Number: US-DX529-2013DX000011

PATIENT
  Age: 47 Year
  Sex: Female
  Weight: 95.26 kg

DRUGS (2)
  1. KALBITOR [Suspect]
     Indication: HEREDITARY ANGIOEDEMA
     Route: 058
     Dates: start: 20130115, end: 20130115
  2. SINGULAIR [Concomitant]
     Indication: ASTHMA
     Route: 048

REACTIONS (3)
  - Convulsion [Recovered/Resolved]
  - VIIth nerve paralysis [Recovered/Resolved]
  - Headache [Recovering/Resolving]
